FAERS Safety Report 7639691-0 (Version None)
Quarter: 2011Q3

REPORT INFORMATION
  Report Type: 
  Country: None (occurrence: None)
  Receive Date: 20110727
  Receipt Date: 20110712
  Transmission Date: 20111222
  Serious: Yes (Other)
  Sender: FDA-Public Use
  Company Number: US-WATSON-2011-10738

PATIENT
  Sex: Female

DRUGS (2)
  1. REGLAN [Suspect]
     Indication: DYSPEPSIA
     Dosage: UNK
     Route: 048
     Dates: start: 20060301, end: 20080801
  2. METOCLOPRAMIDE HYDROCHLORIDE [Suspect]
     Indication: DYSPEPSIA
     Dosage: UNK
     Route: 048
     Dates: start: 20060301, end: 20080801

REACTIONS (9)
  - DYSTONIA [None]
  - EYE MOVEMENT DISORDER [None]
  - PARKINSON'S DISEASE [None]
  - EXTRAPYRAMIDAL DISORDER [None]
  - TREMOR [None]
  - INCORRECT DRUG ADMINISTRATION DURATION [None]
  - NERVOUS SYSTEM DISORDER [None]
  - TARDIVE DYSKINESIA [None]
  - MOTOR DYSFUNCTION [None]
